FAERS Safety Report 5571985-5 (Version None)
Quarter: 2007Q4

REPORT INFORMATION
  Report Type: 
  Country: None (occurrence: None)
  Receive Date: 20071221
  Receipt Date: 20071220
  Transmission Date: 20080405
  Serious: Yes (Life-Threatening, Other)
  Sender: FDA-Public Use
  Company Number: JP-BOEHRINGER INGELHEIM PHARMACEUTICALS, INC.-2007-BP-23809NB

PATIENT
  Sex: Female
  Weight: 47 kg

DRUGS (2)
  1. MICARDIS [Suspect]
     Indication: HYPERTENSION
     Route: 048
     Dates: start: 20071016, end: 20071025
  2. VONFENAC [Concomitant]
     Indication: HEADACHE
     Dates: start: 20071014, end: 20071101

REACTIONS (3)
  - GRANULOCYTE COUNT DECREASED [None]
  - SEPSIS [None]
  - WOUND COMPLICATION [None]
